FAERS Safety Report 13360379 (Version 1)
Quarter: 2017Q1

REPORT INFORMATION
  Report Type: Spontaneous
  Country: US (occurrence: US)
  Receive Date: 20170322
  Receipt Date: 20170322
  Transmission Date: 20170429
  Serious: No
  Sender: FDA-Public Use
  Company Number: US-PFIZER INC-2017118612

PATIENT
  Age: 4 Month

DRUGS (1)
  1. EUCRISA [Suspect]
     Active Substance: CRISABOROLE
     Dosage: UNK

REACTIONS (4)
  - Crying [Unknown]
  - Drug administered to patient of inappropriate age [Unknown]
  - Skin burning sensation [Unknown]
  - Pain [Unknown]
